FAERS Safety Report 22344472 (Version 1)
Quarter: 2023Q2

REPORT INFORMATION
  Report Type: Report from Study
  Country: US (occurrence: US)
  Receive Date: 20230519
  Receipt Date: 20230519
  Transmission Date: 20230722
  Serious: No
  Sender: FDA-Public Use
  Company Number: US-002147023-NVSC2023US111092

PATIENT
  Sex: Female

DRUGS (5)
  1. CALCIPOTRIENE [Suspect]
     Active Substance: CALCIPOTRIENE
     Indication: Psoriasis
     Dosage: UNK
     Route: 065
  2. IBUPROFEN [Suspect]
     Active Substance: IBUPROFEN
     Indication: Psoriasis
     Dosage: UNK
     Route: 065
  3. SPIRONOLACTONE [Suspect]
     Active Substance: SPIRONOLACTONE
     Indication: Psoriasis
     Dosage: UNK
     Route: 065
  4. TIZANIDINE [Suspect]
     Active Substance: TIZANIDINE
     Indication: Psoriasis
     Dosage: UNK
     Route: 065
  5. .ALPHA.-TOCOPHEROL\ASCORBIC ACID [Suspect]
     Active Substance: .ALPHA.-TOCOPHEROL\ASCORBIC ACID
     Indication: Psoriasis
     Dosage: UNK
     Route: 065

REACTIONS (5)
  - Psoriasis [Unknown]
  - Inflammation [Unknown]
  - Dermal cyst [Unknown]
  - Papule [Unknown]
  - Drug ineffective [Unknown]
